FAERS Safety Report 4518699-8 (Version None)
Quarter: 2004Q4

REPORT INFORMATION
  Report Type: 
  Country: None (occurrence: None)
  Receive Date: 20041201
  Receipt Date: 20041119
  Transmission Date: 20050328
  Serious: Yes (Death, Life-Threatening)
  Sender: FDA-Public Use
  Company Number: HQWYE559319NOV04

PATIENT
  Age: 66 Year
  Sex: Male

DRUGS (2)
  1. TAZOCIN (PIPERACILLIN/TAZOBACTAM) [Suspect]
     Dosage: 2.5 G 2X PER 1 DAY INTRAVENOUS DRIP
     Route: 041
     Dates: start: 20030428, end: 20030502
  2. FOY (GABEXATE MESILATE) [Concomitant]

REACTIONS (2)
  - DISSEMINATED INTRAVASCULAR COAGULATION [None]
  - MULTI-ORGAN FAILURE [None]
